FAERS Safety Report 21904299 (Version 2)
Quarter: 2023Q1

REPORT INFORMATION
  Report Type: Spontaneous
  Country: JP (occurrence: JP)
  Receive Date: 20230124
  Receipt Date: 20230209
  Transmission Date: 20230418
  Serious: Yes (Hospitalization)
  Sender: FDA-Public Use
  Company Number: JP-TEVA-2023-JP-2848609

PATIENT
  Age: 87 Year
  Sex: Female

DRUGS (8)
  1. PREDNISOLONE [Suspect]
     Active Substance: PREDNISOLONE
     Indication: Asthma
     Dosage: 20 MILLIGRAM DAILY;
     Route: 048
  2. PREDNISOLONE [Suspect]
     Active Substance: PREDNISOLONE
     Dosage: 10 MILLIGRAM DAILY;
     Route: 048
  3. PREDNISOLONE [Suspect]
     Active Substance: PREDNISOLONE
     Dosage: LESS THAN 5 MG DAILY
     Route: 048
  4. FLUTICASONE FUROATE\VILANTEROL TRIFENATATE [Suspect]
     Active Substance: FLUTICASONE FUROATE\VILANTEROL TRIFENATATE
     Indication: Asthma
     Dosage: HIGH DOSE
     Route: 065
  5. MEPOLIZUMAB [Suspect]
     Active Substance: MEPOLIZUMAB
     Indication: Asthma
     Route: 065
  6. METHYLPREDNISOLONE [Suspect]
     Active Substance: METHYLPREDNISOLONE
     Indication: Asthma
     Dosage: 120 MILLIGRAM DAILY;
     Route: 042
  7. METHYLPREDNISOLONE [Suspect]
     Active Substance: METHYLPREDNISOLONE
     Dosage: 80 MILLIGRAM DAILY;
     Route: 042
  8. MONTELUKAST [Concomitant]
     Active Substance: MONTELUKAST SODIUM
     Indication: Asthma
     Route: 065

REACTIONS (2)
  - Pneumocystis jirovecii pneumonia [Recovered/Resolved]
  - Drug ineffective [Unknown]
